FAERS Safety Report 8182168-7 (Version None)
Quarter: 2012Q1

REPORT INFORMATION
  Report Type: 
  Country: None (occurrence: None)
  Receive Date: 20120302
  Receipt Date: 20120227
  Transmission Date: 20120608
  Serious: Yes (Life-Threatening, Other)
  Sender: FDA-Public Use
  Company Number: US-ROCHE-1043828

PATIENT
  Age: 55 Year
  Sex: Female

DRUGS (4)
  1. RITUXAN [Suspect]
     Indication: VASCULITIS
     Route: 065
  2. AZATHIOPRINE [Concomitant]
     Indication: ALLERGIC GRANULOMATOUS ANGIITIS
     Route: 065
  3. PREDNISONE TAB [Suspect]
     Indication: VASCULITIS
     Route: 065
  4. CYCLOPHOSPHAMIDE [Suspect]
     Indication: VASCULITIS
     Route: 065

REACTIONS (3)
  - PNEUMONIA [None]
  - SINUSITIS [None]
  - HYPOGAMMAGLOBULINAEMIA [None]
